FAERS Safety Report 5325107-6 (Version None)
Quarter: 2007Q2

REPORT INFORMATION
  Report Type: 
  Country: None (occurrence: None)
  Receive Date: 20070511
  Receipt Date: 20070511
  Transmission Date: 20071010
  Serious: Yes (Hospitalization)
  Sender: FDA-Public Use
  Company Number: None

PATIENT
  Age: 75 Year
  Sex: Male
  Weight: 74 kg

DRUGS (1)
  1. PARACETAMOL [Suspect]
     Indication: BACK PAIN
     Dosage: 3 MONTHS

REACTIONS (1)
  - AMNESIA [None]
